FAERS Safety Report 16398448 (Version 3)
Quarter: 2019Q4

REPORT INFORMATION
  Report Type: Report from Study
  Country: US (occurrence: US)
  Receive Date: 20190606
  Receipt Date: 20191210
  Transmission Date: 20200122
  Serious: Yes (Other)
  Sender: FDA-Public Use
  Company Number: US-PFIZER INC-2019234374

PATIENT
  Age: 63 Year
  Sex: Female

DRUGS (5)
  1. PREDNISONE. [Concomitant]
     Active Substance: PREDNISONE
     Dosage: 1 MG, UNK (DECREASED TO 1MG EVERY OTHER DAY 2 MONTHS AGO)
  2. METHOTREXATE. [Concomitant]
     Active Substance: METHOTREXATE
     Dosage: UNK
  3. PREDNISONE. [Concomitant]
     Active Substance: PREDNISONE
     Dosage: UNK
  4. XELJANZ XR [Suspect]
     Active Substance: TOFACITINIB CITRATE
     Indication: RHEUMATOID ARTHRITIS
     Dosage: 11 MG, DAILY
     Route: 048
     Dates: start: 20190220
  5. CRANBERRY. [Concomitant]
     Active Substance: CRANBERRY
     Indication: INFECTION PROPHYLAXIS

REACTIONS (6)
  - Hepatic enzyme increased [Unknown]
  - Palpitations [Recovering/Resolving]
  - Heart rate increased [Recovering/Resolving]
  - Blood cholesterol increased [Unknown]
  - Arthralgia [Unknown]
  - Acne [Unknown]

NARRATIVE: CASE EVENT DATE: 20190425
